FAERS Safety Report 15749495 (Version 1)
Quarter: 2018Q4

REPORT INFORMATION
  Report Type: Spontaneous
  Country: DE (occurrence: DE)
  Receive Date: 20181221
  Receipt Date: 20181221
  Transmission Date: 20190205
  Serious: Yes (Other)
  Sender: FDA-Public Use
  Company Number: DE-ACCORD-096758

PATIENT
  Age: 36 Year
  Sex: Male

DRUGS (5)
  1. VALPROIC ACID. [Suspect]
     Active Substance: VALPROIC ACID
     Indication: FRONTAL LOBE EPILEPSY
     Dosage: 1500 MG, UNK
     Route: 065
  2. OXCARBAZEPINE. [Suspect]
     Active Substance: OXCARBAZEPINE
     Indication: FRONTAL LOBE EPILEPSY
     Dosage: 1800 MG, UNK
     Route: 065
  3. CLONAZEPAM. [Suspect]
     Active Substance: CLONAZEPAM
     Indication: FRONTAL LOBE EPILEPSY
     Dosage: 6 MG, QD
     Route: 065
  4. TOPIRAMATE. [Suspect]
     Active Substance: TOPIRAMATE
     Indication: FRONTAL LOBE EPILEPSY
     Dosage: 375 MG, UNK
     Route: 065
  5. VALPROIC ACID. [Suspect]
     Active Substance: VALPROIC ACID
     Indication: PRODUCT USED FOR UNKNOWN INDICATION
     Dosage: 750 MG, UNK
     Route: 065

REACTIONS (10)
  - Asterixis [Recovering/Resolving]
  - Encephalopathy [Recovered/Resolved]
  - Gait disturbance [Recovered/Resolved]
  - Mental disorder [Recovered/Resolved]
  - Somnolence [Recovered/Resolved]
  - Hyperammonaemia [Recovered/Resolved]
  - Ataxia [Recovered/Resolved]
  - Seizure [Recovered/Resolved]
  - Fall [Unknown]
  - Abdominal discomfort [Unknown]
